FAERS Safety Report 11181425 (Version 1)
Quarter: 2015Q2

REPORT INFORMATION
  Report Type: Spontaneous
  Country: US (occurrence: US)
  Receive Date: 20150611
  Receipt Date: 20150611
  Transmission Date: 20150821
  Serious: Yes (Other)
  Sender: FDA-Public Use
  Company Number: US-LPDUSPRD-20150417

PATIENT

DRUGS (1)
  1. VENOFER [Suspect]
     Active Substance: IRON SUCROSE
     Dosage: 200 MG IVP
     Route: 040

REACTIONS (4)
  - Pruritus generalised [Recovered/Resolved]
  - Nervousness [Recovered/Resolved]
  - Hypotension [Unknown]
  - Muscle rigidity [Recovered/Resolved]
